FAERS Safety Report 4339356-7 (Version None)
Quarter: 2004Q2

REPORT INFORMATION
  Report Type: 
  Country: None (occurrence: None)
  Receive Date: 20040414
  Receipt Date: 20040414
  Transmission Date: 20050107
  Serious: Yes (Hospitalization)
  Sender: FDA-Public Use
  Company Number: None

PATIENT
  Sex: Female

DRUGS (1)
  1. CERVIDIL VAG INSERT FOREST [Suspect]
     Indication: LABOUR INDUCTION
     Dosage: ONE TIME VAGINAL
     Route: 067
     Dates: start: 20040324, end: 20040324

REACTIONS (4)
  - CAESAREAN SECTION [None]
  - COMPLICATIONS OF MATERNAL EXPOSURE TO THERAPEUTIC DRUGS [None]
  - FOETAL HEART RATE DISORDER [None]
  - MATERNAL DRUGS AFFECTING FOETUS [None]
